FAERS Safety Report 8266195-7 (Version None)
Quarter: 2012Q2

REPORT INFORMATION
  Report Type: 
  Country: None (occurrence: None)
  Receive Date: 20120406
  Receipt Date: 20120330
  Transmission Date: 20120825
  Serious: Yes (Other)
  Sender: FDA-Public Use
  Company Number: US-PFIZER INC-2012065102

PATIENT
  Sex: Female
  Weight: 77.098 kg

DRUGS (2)
  1. HYDROCODONE [Concomitant]
     Indication: PAIN
     Dosage: 7.5 MG, UNK
  2. CHANTIX [Suspect]
     Indication: SMOKING CESSATION THERAPY
     Dosage: 0.5 MG, DAILY
     Dates: start: 20090101, end: 20090101

REACTIONS (12)
  - POST-TRAUMATIC STRESS DISORDER [None]
  - SPINAL COLUMN STENOSIS [None]
  - INTERVERTEBRAL DISC DEGENERATION [None]
  - INTERVERTEBRAL DISC PROTRUSION [None]
  - HAEMANGIOMA [None]
  - CEREBROVASCULAR ACCIDENT [None]
  - EXOSTOSIS [None]
  - VISUAL IMPAIRMENT [None]
  - TREMOR [None]
  - FACET JOINT SYNDROME [None]
  - PERSONALITY CHANGE [None]
  - FEELING ABNORMAL [None]
